FAERS Safety Report 8119641 (Version 2)
Quarter: 2013Q4

REPORT INFORMATION
  Report Type: Report from Study
  Country: CH (occurrence: CH)
  Receive Date: 20110902
  Receipt Date: 20131025
  Transmission Date: 20140711
  Serious: Yes (Death, Hospitalization, Other)
  Sender: FDA-Public Use
  Company Number: CH-PFIZER INC-2011143133

PATIENT
  Age: 61 Year
  Sex: Male
  Weight: 85 kg

DRUGS (23)
  1. CRIZOTINIB [Suspect]
     Indication: NON-SMALL CELL LUNG CANCER
     Dosage: 250 MG, 2X/DAY
     Route: 048
     Dates: start: 20110203
  2. ASS [Concomitant]
     Indication: TRANSIENT ISCHAEMIC ATTACK
     Dosage: 100 MG (1-0-0), 1X/DAY
     Route: 048
  3. PANTOZOL [Concomitant]
     Indication: GASTRITIS
     Dosage: 40 MG (1-0-0), 1X/DAY
     Route: 048
  4. PANTOZOL [Concomitant]
     Dosage: 20 MG, 1X/DAY
     Route: 048
  5. PREDNISON [Concomitant]
     Indication: DYSPNOEA
     Dosage: 10 MG (1-0-0), 1X/DAY
     Route: 048
  6. TRANSIPEG [Concomitant]
     Indication: CONSTIPATION
     Dosage: 2 DF (2-2-0), 2X/DAY
     Route: 048
     Dates: start: 20110707
  7. TEMESTA [Concomitant]
     Indication: RESTLESSNESS
     Dosage: 1 MG, AS NEEDED
     Route: 048
  8. TEMESTA [Concomitant]
     Indication: NERVOUSNESS
  9. RESYL PLUS [Concomitant]
     Indication: COUGH
     Dosage: 60 DROPS (20-20-20), DAILY
     Route: 048
  10. TOREM [Concomitant]
     Indication: OEDEMA
     Dosage: 10 MG (1-0-0), 1X/DAY
     Route: 048
  11. CALCIUM VITAMIN D3 [Concomitant]
     Dosage: 500 MG (1-0-1), 2X/DAY
     Route: 048
  12. DOSPIR [Concomitant]
     Dosage: 1 DF(1-1-1), 3X/DAY
  13. LAXOBERON [Concomitant]
     Indication: CONSTIPATION
     Dosage: 15 GTT, 1X/DAY
  14. LAXOBERON [Concomitant]
     Dosage: UNK GTT, AS NEEDED
     Dates: start: 20110620, end: 20110703
  15. MORPHINE [Concomitant]
     Dosage: 5 MG, AS NEEDED
  16. FRESUBIN ENERGY [Concomitant]
     Dosage: UNK
  17. DAFALGAN [Concomitant]
     Indication: PAIN
     Dosage: UNK
  18. DAFALGAN [Concomitant]
     Indication: HEADACHE
  19. PASPERTIN [Concomitant]
     Indication: NAUSEA
     Dosage: 10 MG, AS NEEDED
  20. DUPHALAC [Concomitant]
     Dosage: 10 ML, 1X/DAY
     Dates: start: 20110623
  21. FEIGENSIRUP [Concomitant]
     Dosage: 10 ML, AS NEEDED
     Dates: start: 20110623
  22. DULCOLAX [Concomitant]
     Dosage: 2 DF, UNK
     Dates: start: 20110704
  23. MAGNESIUM [Concomitant]
     Indication: MUSCLE SPASMS
     Dosage: 1 DF, UNK
     Dates: start: 20110703

REACTIONS (7)
  - Death [Fatal]
  - Pulmonary embolism [Recovering/Resolving]
  - Dyspnoea [Recovering/Resolving]
  - Somnolence [Unknown]
  - Convulsion [Unknown]
  - Local swelling [Unknown]
  - Hypoalbuminaemia [Unknown]
